FAERS Safety Report 9888240 (Version 1)
Quarter: 2014Q1

REPORT INFORMATION
  Report Type: Spontaneous
  Country: JP (occurrence: None)
  Receive Date: 20140207
  Receipt Date: 20140207
  Transmission Date: 20141002
  Serious: Yes (Hospitalization)
  Sender: FDA-Public Use
  Company Number: SYM-2014-17047

PATIENT
  Age: 80 Year
  Sex: 0
  Weight: 56 kg

DRUGS (10)
  1. RFB002 OR RFB002+ VETEPORFIN PHOTODYNAMIC THERAPY(LUCENTIS [Suspect]
     Indication: POLYPOIDAL CHOROIDAL VASCULOPATHY
     Dosage: 0.5 MG, INTRAVITREAL INJECTION
  2. LUCENTIS [Suspect]
     Indication: POLYPOIDAL CHOROIDAL VASCULOPATHY
     Dosage: INTRAVEITREAL INJECTION
     Dates: start: 20131018, end: 20131018
  3. NORVASC (AMLODIPINE BESILATE) [Concomitant]
  4. MICARDIS (TELMISARTAN) [Concomitant]
  5. HARNAL (TAMSULOSIN HYDROCHLORIDE) [Concomitant]
  6. MUCOSOLVAN(AMBROXOL HYDROCHLORIDE) (AMBROXOL HYDROCHLORIDE) [Concomitant]
  7. BAYASPIRIN(ACETYLSALICYLIC ACID) (ACETYLSALICYLIC ACID) [Concomitant]
  8. BIOFERMIN(BIOFERMIN /07958301/) ENTEROCOCCUS FAECALIS, LACTOBACILLUS ACIDOPHILUS, BACILLUS SUBTILIS) [Concomitant]
  9. MAGLAX(MAGNESIUM OXIDE) (MAGNESIUM OXIDE) [Concomitant]
  10. CRAVIT(LEVOFLOXACIN)(LEVOFLOXACIN) [Concomitant]

REACTIONS (4)
  - Presyncope [None]
  - Body temperature decreased [None]
  - Blood potassium increased [None]
  - Blood lactate dehydrogenase increased [None]
